FAERS Safety Report 8233402-6 (Version None)
Quarter: 2012Q1

REPORT INFORMATION
  Report Type: 
  Country: None (occurrence: None)
  Receive Date: 20120326
  Receipt Date: 20120319
  Transmission Date: 20120608
  Serious: Yes (Other)
  Sender: FDA-Public Use
  Company Number: US-AMGEN-USASP2012017976

PATIENT
  Age: 37 Year
  Sex: Female

DRUGS (6)
  1. BEVACIZUMAB [Suspect]
     Dosage: 15 MG/KG, UNK
  2. DOXORUBICIN HCL [Suspect]
     Indication: BREAST CANCER
     Dosage: 60 MG/M2, UNK
     Route: 042
     Dates: start: 20081118
  3. FILGRASTIM [Suspect]
     Indication: BREAST CANCER
     Dosage: 5 MUG/KG, UNK
     Route: 058
     Dates: start: 20081118
  4. BEVACIZUMAB [Suspect]
     Indication: BREAST CANCER
     Dosage: 10 MG/KG, UNK
     Route: 042
     Dates: start: 20081118
  5. CYCLOPHOSPHAMIDE [Suspect]
     Indication: BREAST CANCER
     Dosage: 600 MG/M2, UNK
     Route: 042
     Dates: start: 20081118
  6. PACLITAXEL [Suspect]
     Indication: BREAST CANCER
     Dosage: 80 MG/M2, UNK
     Route: 042
     Dates: start: 20081118

REACTIONS (1)
  - LEFT VENTRICULAR DYSFUNCTION [None]
